FAERS Safety Report 6417818-6 (Version None)
Quarter: 2009Q4

REPORT INFORMATION
  Report Type: 
  Country: None (occurrence: None)
  Receive Date: 20091027
  Receipt Date: 20091027
  Transmission Date: 20100525
  Serious: No
  Sender: FDA-Public Use
  Company Number: None

PATIENT
  Age: 39 Year
  Sex: Male
  Weight: 108 kg

DRUGS (9)
  1. NAFCILLIN [Suspect]
     Indication: ENDOCARDITIS
     Dosage: 2GM IV Q4H
     Route: 042
     Dates: start: 20090709, end: 20090804
  2. PAROXETINE [Concomitant]
  3. ASPIRIN [Concomitant]
  4. INSULIN [Concomitant]
  5. TYLENOL W/COD [Concomitant]
  6. AMIODARONE [Concomitant]
  7. M.V.I. [Concomitant]
  8. FUROSEMIDE [Concomitant]
  9. NYSTATIN [Concomitant]

REACTIONS (6)
  - BLOOD CREATININE INCREASED [None]
  - NEPHRITIS ALLERGIC [None]
  - RASH [None]
  - RASH PAPULAR [None]
  - SKIN DISCOLOURATION [None]
  - TUBULOINTERSTITIAL NEPHRITIS [None]
